FAERS Safety Report 7794886-0 (Version None)
Quarter: 2011Q4

REPORT INFORMATION
  Report Type: 
  Country: None (occurrence: None)
  Receive Date: 20111004
  Receipt Date: 20110922
  Transmission Date: 20120403
  Serious: Yes (Other)
  Sender: FDA-Public Use
  Company Number: PHHY2011JP75257

PATIENT
  Age: 61 Year
  Sex: Male

DRUGS (7)
  1. INSULIN [Concomitant]
  2. AMOXAPINE [Concomitant]
     Route: 048
  3. ASPIRIN [Concomitant]
     Dosage: 100 MG
     Route: 048
  4. EXFORGE [Suspect]
     Indication: HYPERTENSION
     Dosage: 10 DF, UNK
     Route: 048
     Dates: start: 20110821, end: 20110821
  5. VOGLIBOSE [Concomitant]
     Dosage: 0.3 MG
     Route: 048
  6. LIVALO [Concomitant]
     Dosage: 2 MG
     Route: 048
  7. EXFORGE [Suspect]
     Route: 048
     Dates: start: 20110824

REACTIONS (5)
  - DEPRESSIVE SYMPTOM [None]
  - BLOOD PRESSURE DECREASED [None]
  - DEPRESSION [None]
  - OVERDOSE [None]
  - CONFUSIONAL STATE [None]
